FAERS Safety Report 7349779-X (Version None)
Quarter: 2011Q1

REPORT INFORMATION
  Report Type: 
  Country: None (occurrence: None)
  Receive Date: 20110218
  Receipt Date: 20100608
  Transmission Date: 20110831
  Serious: Yes (Other)
  Sender: FDA-Public Use
  Company Number: JHP201000184

PATIENT
  Age: 57 Year
  Sex: Male

DRUGS (1)
  1. APLISOL [Suspect]
     Indication: TUBERCULIN TEST
     Dosage: 0.1ML, SINGLE, INTRAVENOUS
     Route: 042
     Dates: start: 20100601, end: 20100601

REACTIONS (2)
  - RASH PRURITIC [None]
  - SKIN BURNING SENSATION [None]
